FAERS Safety Report 13188425 (Version 3)
Quarter: 2017Q3

REPORT INFORMATION
  Report Type: Spontaneous
  Country: US (occurrence: US)
  Receive Date: 20170206
  Receipt Date: 20170823
  Transmission Date: 20171127
  Serious: No
  Sender: FDA-Public Use
  Company Number: US-PFIZER INC-2017048848

PATIENT
  Age: 68 Year
  Sex: Female

DRUGS (1)
  1. XELJANZ [Suspect]
     Active Substance: TOFACITINIB CITRATE
     Indication: RHEUMATOID ARTHRITIS
     Dosage: 5 MG, 2X/DAY
     Dates: start: 201603

REACTIONS (5)
  - Gastroenteritis viral [Unknown]
  - Microcytic anaemia [Unknown]
  - Haemoglobin decreased [Unknown]
  - Influenza [Unknown]
  - Drug dose omission [Unknown]
